FAERS Safety Report 10050233 (Version 1)
Quarter: 2014Q2

REPORT INFORMATION
  Report Type: Spontaneous
  Country: US (occurrence: US)
  Receive Date: 20140401
  Receipt Date: 20140401
  Transmission Date: 20141212
  Serious: Yes (Death)
  Sender: FDA-Public Use
  Company Number: US-INCYTE CORPORATION-2014IN000846

PATIENT
  Age: 80 Year
  Sex: Male

DRUGS (11)
  1. JAKAFI [Suspect]
     Dosage: 15 MG, BID
     Route: 048
     Dates: start: 20130412, end: 201402
  2. OMEPRAZOLE [Concomitant]
  3. FOLIC ACID [Concomitant]
  4. METOPROLOL TARTRATE [Concomitant]
  5. ASPIRIN [Concomitant]
  6. VERAPAMIL                          /00014302/ [Concomitant]
  7. ANAGRELIDE HCL [Concomitant]
  8. HYDROXYUREA [Concomitant]
  9. FUROSEMIDE [Concomitant]
  10. ALLOPURINOL [Concomitant]
  11. WARFARIN [Concomitant]

REACTIONS (1)
  - Death [Fatal]
